FAERS Safety Report 8508119-0 (Version None)
Quarter: 2012Q3

REPORT INFORMATION
  Report Type: 
  Country: None (occurrence: None)
  Receive Date: 20120713
  Receipt Date: 20120705
  Transmission Date: 20120928
  Serious: Yes (Death)
  Sender: FDA-Public Use
  Company Number: DK-JNJFOC-20120703929

PATIENT

DRUGS (4)
  1. PIMOZIDE [Suspect]
     Indication: SCHIZOPHRENIA
     Route: 065
  2. HALOPERIDOL [Suspect]
     Indication: SCHIZOPHRENIA
     Route: 065
  3. FLUPENTIXOL [Suspect]
     Indication: SCHIZOPHRENIA
     Route: 065
  4. FLUPHENAZINE HCL [Suspect]
     Indication: SCHIZOPHRENIA
     Route: 065

REACTIONS (1)
  - ILEUS [None]
